FAERS Safety Report 8455749-0 (Version None)
Quarter: 2012Q2

REPORT INFORMATION
  Report Type: 
  Country: None (occurrence: None)
  Receive Date: 20120621
  Receipt Date: 20120618
  Transmission Date: 20120825
  Serious: No
  Sender: FDA-Public Use
  Company Number: US-PFIZER INC-2011236072

PATIENT
  Sex: Female

DRUGS (5)
  1. LYRICA [Interacting]
     Dosage: 100 MG, 2X/DAY
     Route: 048
  2. OMEGA-3 FATTY ACID [Interacting]
     Dosage: UNK
  3. LYRICA [Suspect]
     Indication: FIBROMYALGIA
     Dosage: 75 MG, 2X/DAY (BID)
     Route: 048
     Dates: start: 20090401
  4. TRIPLE OMEGA 3-6-9 [Interacting]
     Dosage: UNK
  5. VITAMIN B-12 [Concomitant]
     Indication: COELIAC DISEASE
     Dosage: UNK, Q DAILY
     Dates: start: 20040801

REACTIONS (3)
  - DRUG INTERACTION [None]
  - DRUG INEFFECTIVE [None]
  - DRUG EFFECT DECREASED [None]
